FAERS Safety Report 12432634 (Version 2)
Quarter: 2016Q2

REPORT INFORMATION
  Report Type: Spontaneous
  Country: US (occurrence: US)
  Receive Date: 20160603
  Receipt Date: 20160630
  Transmission Date: 20160815
  Serious: Yes (Other)
  Sender: FDA-Public Use
  Company Number: US-SUN PHARMACEUTICAL INDUSTRIES LTD-2016US-117650

PATIENT
  Age: 42 Year
  Sex: Male

DRUGS (4)
  1. PAROXETINE. [Interacting]
     Active Substance: PAROXETINE
     Dosage: 40 MG
     Route: 065
  2. ALCOHOL. [Interacting]
     Active Substance: ALCOHOL
     Indication: PRODUCT USED FOR UNKNOWN INDICATION
     Dosage: UNK
     Route: 065
  3. FORMOTEROL FUMARATE/BUDESONIDE [Interacting]
     Active Substance: BUDESONIDE\FORMOTEROL FUMARATE
     Indication: ASTHMA
     Dosage: UNK
     Route: 045
  4. PAROXETINE. [Suspect]
     Active Substance: PAROXETINE
     Indication: EMOTIONAL DISTRESS
     Dosage: 20 MG, DAILY
     Route: 065

REACTIONS (6)
  - Homicidal ideation [Recovered/Resolved]
  - Toxicity to various agents [Recovered/Resolved]
  - Akathisia [Recovered/Resolved]
  - Aggression [Recovered/Resolved]
  - Serotonin syndrome [Recovered/Resolved]
  - Drug interaction [Recovered/Resolved]
